FAERS Safety Report 15434340 (Version 3)
Quarter: 2018Q4

REPORT INFORMATION
  Report Type: Spontaneous
  Country: US (occurrence: US)
  Receive Date: 20180927
  Receipt Date: 20181030
  Transmission Date: 20190204
  Serious: Yes (Hospitalization)
  Sender: FDA-Public Use
  Company Number: US-UNITED THERAPEUTICS-UNT-2018-015333

PATIENT
  Age: 79 Year
  Sex: Male
  Weight: 74.83 kg

DRUGS (1)
  1. REMODULIN [Suspect]
     Active Substance: TREPROSTINIL
     Indication: PULMONARY ARTERIAL HYPERTENSION
     Dosage: 0.021 ?G/KG, CONTINUING
     Route: 041
     Dates: start: 20171025

REACTIONS (5)
  - Device dislocation [Recovered/Resolved]
  - Pulmonary hypertension [Unknown]
  - Incorrect dose administered by device [Recovered/Resolved]
  - Chronic obstructive pulmonary disease [Unknown]
  - Condition aggravated [Unknown]

NARRATIVE: CASE EVENT DATE: 20180919
